FAERS Safety Report 14301836 (Version 2)
Quarter: 2018Q1

REPORT INFORMATION
  Report Type: Spontaneous
  Country: CA (occurrence: CA)
  Receive Date: 20171219
  Receipt Date: 20180117
  Transmission Date: 20180509
  Serious: Yes (Other)
  Sender: FDA-Public Use
  Company Number: CA-PFIZER INC-2017538342

PATIENT
  Age: 75 Year
  Sex: Female

DRUGS (2)
  1. DENOSUMAB [Suspect]
     Active Substance: DENOSUMAB
     Indication: BREAST CANCER METASTATIC
     Dosage: UNK UNK, MONTHLY
  2. EXEMESTANE. [Suspect]
     Active Substance: EXEMESTANE
     Indication: BREAST CANCER METASTATIC
     Dosage: UNK UNK, 1X/DAY

REACTIONS (4)
  - Renal impairment [Not Recovered/Not Resolved]
  - Liver function test abnormal [Unknown]
  - Blood test abnormal [Unknown]
  - Neoplasm progression [Not Recovered/Not Resolved]
